FAERS Safety Report 5394087-X (Version None)
Quarter: 2007Q3

REPORT INFORMATION
  Report Type: 
  Country: None (occurrence: None)
  Receive Date: 20070723
  Receipt Date: 20070305
  Transmission Date: 20080115
  Serious: No
  Sender: FDA-Public Use
  Company Number: A0641893A

PATIENT
  Age: 86 Year
  Sex: Female

DRUGS (5)
  1. AVANDIA [Suspect]
     Dosage: 2MG TWICE PER DAY
     Route: 048
  2. COUMADIN [Concomitant]
  3. ATENOLOL [Concomitant]
  4. SYNTHROID [Concomitant]
  5. LISINOPRIL [Concomitant]

REACTIONS (5)
  - BLOOD GLUCOSE DECREASED [None]
  - BLOOD GLUCOSE INCREASED [None]
  - DIZZINESS [None]
  - VISION BLURRED [None]
  - WEIGHT INCREASED [None]
